FAERS Safety Report 24054695 (Version 1)
Quarter: 2024Q3

REPORT INFORMATION
  Report Type: Spontaneous
  Country: TR (occurrence: TR)
  Receive Date: 20240705
  Receipt Date: 20240705
  Transmission Date: 20241017
  Serious: Yes (Life-Threatening, Hospitalization)
  Sender: Steriscience PTE
  Company Number: TR-STERISCIENCE B.V.-2024-ST-000958

PATIENT
  Age: 69 Year

DRUGS (6)
  1. SODIUM BICARBONATE [Suspect]
     Active Substance: SODIUM BICARBONATE
     Indication: Anaesthesia
     Dosage: 2 ML OF SODIUM BICARBONATE (8.4% 10 ML) TO MAKE 20ML ANAESTHESIA SOLUTION, 5 ML OF ANESTHESIA SOLUTI
     Route: 008
  2. MIDAZOLAM [Suspect]
     Active Substance: MIDAZOLAM
     Indication: Sedation
     Dosage: 1 MILLIGRAM
     Route: 065
  3. LIDOCAINE [Suspect]
     Active Substance: LIDOCAINE
     Indication: Anaesthesia
     Dosage: 10 ML OF 2% LIDOCAINE (20 MG/ML) TO MAKE 20ML ANAESTHESIA SOLUTION, 5 ML OF ANESTHESIA SOLUTION ADMI
     Route: 008
  4. SODIUM CHLORIDE [Suspect]
     Active Substance: SODIUM CHLORIDE
     Indication: Anaesthesia
     Dosage: 6 ML OF 0.9% SODIUM-CHLORIDE TO MAKE 20ML ANAESTHESIA SOLUTION, 5 ML OF ANESTHESIA SOLUTION ADMINIST
     Route: 008
  5. FENTANYL [Suspect]
     Active Substance: FENTANYL\FENTANYL CITRATE
     Indication: Sedation
     Dosage: 50 MICROGRAM
     Route: 065
  6. FENTANYL [Suspect]
     Active Substance: FENTANYL\FENTANYL CITRATE
     Indication: Anaesthesia
     Dosage: 2 ML OF FENTANYL (50 MCG/ML) TO MAKE 20ML ANAESTHESIA SOLUTION, 5 ML OF ANESTHESIA SOLUTION ADMINIST
     Route: 008

REACTIONS (2)
  - Hypotension [Unknown]
  - Off label use [Unknown]
